FAERS Safety Report 23471980 (Version 1)
Quarter: 2024Q1

REPORT INFORMATION
  Report Type: Report from Study
  Country: ES (occurrence: ES)
  Receive Date: 20240202
  Receipt Date: 20240202
  Transmission Date: 20240409
  Serious: Yes (Other)
  Sender: FDA-Public Use
  Company Number: ES-JNJFOC-20240175180

PATIENT

DRUGS (5)
  1. DARZALEX [Suspect]
     Active Substance: DARATUMUMAB
     Indication: Plasma cell myeloma
     Route: 065
  2. VELCADE [Suspect]
     Active Substance: BORTEZOMIB
     Indication: Plasma cell myeloma
     Route: 065
  3. DEXAMETHASONE [Suspect]
     Active Substance: DEXAMETHASONE
     Indication: Plasma cell myeloma
     Route: 065
  4. THALIDOMIDE [Suspect]
     Active Substance: THALIDOMIDE
     Indication: Plasma cell myeloma
     Route: 065
  5. REVLIMID [Suspect]
     Active Substance: LENALIDOMIDE
     Indication: Plasma cell myeloma
     Route: 065

REACTIONS (13)
  - Toxic skin eruption [Unknown]
  - Neutropenia [Unknown]
  - Neuropathy peripheral [Unknown]
  - Mood swings [Unknown]
  - Dizziness [Unknown]
  - Vomiting [Unknown]
  - Hypotension [Unknown]
  - Tremor [Unknown]
  - Vision blurred [Unknown]
  - Infection [Unknown]
  - Headache [Unknown]
  - Amenorrhoea [Unknown]
  - Toxicity to various agents [Unknown]
